FAERS Safety Report 9294753 (Version 2)
Quarter: 2013Q3

REPORT INFORMATION
  Report Type: Spontaneous
  Country: US (occurrence: US)
  Receive Date: 20130517
  Receipt Date: 20130902
  Transmission Date: 20140515
  Serious: No
  Sender: FDA-Public Use
  Company Number: US-009507513-1305USA005146

PATIENT
  Sex: Male

DRUGS (7)
  1. VICTRELIS [Suspect]
     Indication: HEPATITIS C
     Dosage: 800 MG, TID
     Route: 048
     Dates: start: 201301
  2. VICTRELIS [Suspect]
     Indication: MULTIPLE SCLEROSIS
  3. REBETOL [Suspect]
     Route: 048
  4. PEGASYS [Suspect]
  5. SOMA [Concomitant]
     Dosage: 350MG TABLET
  6. VICODIN [Concomitant]
     Dosage: 5-500 TABLET
  7. LEXAPRO [Concomitant]
     Dosage: 10MG TABLET

REACTIONS (7)
  - Tooth loss [Unknown]
  - Loose tooth [Unknown]
  - Nausea [Unknown]
  - Libido decreased [Unknown]
  - Fatigue [Unknown]
  - Dysgeusia [Unknown]
  - Hypoaesthesia [Unknown]
